FAERS Safety Report 12478345 (Version 4)
Quarter: 2016Q3

REPORT INFORMATION
  Report Type: Spontaneous
  Country: PL (occurrence: PL)
  Receive Date: 20160617
  Receipt Date: 20160808
  Transmission Date: 20161109
  Serious: Yes (Hospitalization, Disabling, Other)
  Sender: FDA-Public Use
  Company Number: PL-BAUSCH-BL-2016-013851

PATIENT
  Age: 66 Year
  Sex: Female
  Weight: 89 kg

DRUGS (7)
  1. DEXAVEN [Suspect]
     Active Substance: DEXAMETHASONE
     Indication: PREMEDICATION
     Route: 042
     Dates: start: 20151216, end: 20160414
  2. BISOCARD [Concomitant]
     Active Substance: BISOPROLOL
     Indication: HYPERTENSION
     Dates: start: 20160422
  3. ZOLEDRONIC ACID. [Concomitant]
     Active Substance: ZOLEDRONIC ACID
     Indication: METASTASES TO BONE
     Dates: start: 20151102
  4. PF-05280014 [Suspect]
     Active Substance: TRASTUZUMAB
  5. SYMTRAM [Concomitant]
     Indication: BONE PAIN
     Dates: start: 20151102
  6. HERCEPTIN [Suspect]
     Active Substance: TRASTUZUMAB
  7. VALZEK [Concomitant]
     Indication: HYPERTENSION
     Route: 048
     Dates: start: 2000

REACTIONS (7)
  - Walking disability [Unknown]
  - Fracture [Unknown]
  - Feeling abnormal [Unknown]
  - Dizziness [Unknown]
  - Fall [Unknown]
  - Pulmonary embolism [Recovered/Resolved]
  - Headache [Unknown]

NARRATIVE: CASE EVENT DATE: 2016
